FAERS Safety Report 26174168 (Version 1)
Quarter: 2025Q4

REPORT INFORMATION
  Report Type: Spontaneous
  Country: EU (occurrence: EU)
  Receive Date: 20251218
  Receipt Date: 20251218
  Transmission Date: 20260117
  Serious: Yes (Other)
  Sender: BRISTOL-MYERS SQUIBB COMPANY
  Company Number: EU-BRISTOL-MYERS SQUIBB COMPANY-2025-167128

PATIENT
  Age: 60 Year
  Sex: Male

DRUGS (4)
  1. POMALIDOMIDE [Suspect]
     Active Substance: POMALIDOMIDE
     Indication: Plasma cell disorder
     Dosage: 4 CYCLES OF CARFILZIMIB + POMALIDOMIDE + CYCLOPHOSPHAMIDE + DEXAMETHASONE
  2. DEXAMETHASONE [Concomitant]
     Active Substance: DEXAMETHASONE
     Indication: Product used for unknown indication
  3. Carfilzimib [Concomitant]
     Indication: Product used for unknown indication
     Dosage: UNK FOR MAINTENANCE THERAPY, THEN 14 CYCLES OF
  4. CYCLOPHOSPHAMIDE [Concomitant]
     Active Substance: CYCLOPHOSPHAMIDE
     Indication: Product used for unknown indication

REACTIONS (2)
  - Atrial flutter [Unknown]
  - Pulmonary oedema [Unknown]
